FAERS Safety Report 4912907-7 (Version None)
Quarter: 2006Q1

REPORT INFORMATION
  Report Type: 
  Country: None (occurrence: None)
  Receive Date: 20060215
  Receipt Date: 20051118
  Transmission Date: 20060701
  Serious: Yes (Other)
  Sender: FDA-Public Use
  Company Number: 2005AP06018

PATIENT
  Age: 64 Year
  Sex: Female

DRUGS (2)
  1. PRILOSEC [Suspect]
     Indication: REFLUX OESOPHAGITIS
     Dosage: 20-40MG DAILY
     Route: 048
     Dates: start: 20000101
  2. ATORVASTATIN CALCIUM [Suspect]
     Route: 048

REACTIONS (1)
  - CHOLELITHIASIS [None]
